FAERS Safety Report 4413903-9 (Version None)
Quarter: 2004Q3

REPORT INFORMATION
  Report Type: 
  Country: None (occurrence: None)
  Receive Date: 20040728
  Receipt Date: 20040715
  Transmission Date: 20050211
  Serious: Yes (Disabling)
  Sender: FDA-Public Use
  Company Number: 2004046020

PATIENT
  Age: 70 Year
  Sex: Female

DRUGS (7)
  1. NORVASC [Suspect]
     Indication: HYPERTENSION
     Dosage: 5 MG ( 1 IN 1 D), ORAL
     Route: 048
  2. ZOPICLONE (ZOPLICONE) [Concomitant]
  3. PROCATEROL HCL [Concomitant]
  4. EPINASTINE HYDROCHLORIDE( EPINASTINE HYDROCHLORIDE) [Concomitant]
  5. REBAMIPIDE (REBAMIPIDE) [Concomitant]
  6. RANITIDINE HYDROCHLORIDE [Concomitant]
  7. ALENDORNATE SODIUM (ALENDORNATE SODIUM) [Concomitant]

REACTIONS (2)
  - CONDITION AGGRAVATED [None]
  - RETINAL HAEMORRHAGE [None]
